FAERS Safety Report 9575117 (Version 3)
Quarter: 2013Q4

REPORT INFORMATION
  Report Type: Report from Study
  Country: US (occurrence: US)
  Receive Date: 20131001
  Receipt Date: 20131028
  Transmission Date: 20140711
  Serious: Yes (Hospitalization)
  Sender: FDA-Public Use
  Company Number: US-ACTELION-A-US2012-73036

PATIENT
  Age: 50 Year
  Sex: Female

DRUGS (10)
  1. TRACLEER [Suspect]
     Indication: PULMONARY ARTERIAL HYPERTENSION
     Dosage: 125 MG BID
     Route: 048
     Dates: start: 2003
  2. XANAX [Concomitant]
     Dosage: 0.25 MG, PRN
  3. AMBIEN [Concomitant]
     Dosage: 5 MG, PRN
  4. ALBUTEROL [Concomitant]
     Dosage: 2 MG, QD
  5. FUROSEMIDE [Concomitant]
     Dosage: 20 MG, UNK
  6. POTASSIUM [Concomitant]
     Dosage: 10 MEQ, UNK
  7. ZANTAC [Concomitant]
     Dosage: 300 MG, QD
  8. VITAMIN D [Concomitant]
     Dosage: 2000 MG, QD
  9. ZYRTEC [Concomitant]
     Dosage: 10 MG, QD
  10. MULTIVITAMINS [Concomitant]
     Dosage: TABS 1 QD

REACTIONS (5)
  - Hypertension [Recovered/Resolved]
  - Headache [Recovered/Resolved]
  - Fatigue [Unknown]
  - Pruritus [Unknown]
  - Anxiety [Unknown]
